FAERS Safety Report 12214204 (Version 1)
Quarter: 2016Q1

REPORT INFORMATION
  Report Type: Spontaneous
  Country: US (occurrence: US)
  Receive Date: 20160328
  Receipt Date: 20160328
  Transmission Date: 20160526
  Serious: No
  Sender: FDA-Public Use
  Company Number: US-WARNER CHILCOTT, LLC-1049773

PATIENT
  Age: 71 Year
  Sex: Female

DRUGS (3)
  1. LEVOTHYROXINE. [Concomitant]
     Active Substance: LEVOTHYROXINE
  2. ESTRACE [Suspect]
     Active Substance: ESTRADIOL
     Indication: UTERINE PROLAPSE
     Route: 067
     Dates: start: 20151208
  3. VITAMINS NOS [Concomitant]
     Active Substance: VITAMINS

REACTIONS (3)
  - Application site discharge [Not Recovered/Not Resolved]
  - Urinary tract infection [Recovered/Resolved]
  - Vulvovaginal pruritus [Recovered/Resolved]
